FAERS Safety Report 11781067 (Version 2)
Quarter: 2015Q4

REPORT INFORMATION
  Report Type: Spontaneous
  Country: JP (occurrence: JP)
  Receive Date: 20151126
  Receipt Date: 20151203
  Transmission Date: 20160305
  Serious: No
  Sender: FDA-Public Use
  Company Number: JP-ASTRAZENECA-2015SF18088

PATIENT
  Age: 81 Year
  Sex: Female

DRUGS (1)
  1. IRESSA [Suspect]
     Active Substance: GEFITINIB
     Indication: LUNG ADENOCARCINOMA STAGE II
     Route: 048

REACTIONS (1)
  - Skin lesion [Unknown]
